FAERS Safety Report 21722682 (Version 9)
Quarter: 2023Q4

REPORT INFORMATION
  Report Type: Spontaneous
  Country: US (occurrence: US)
  Receive Date: 20221213
  Receipt Date: 20231026
  Transmission Date: 20240110
  Serious: Yes (Hospitalization, Other)
  Sender: FDA-Public Use
  Company Number: US-UPSHER-SMITH LABORATORIES, LLC-2022USL00948

PATIENT
  Sex: Female

DRUGS (13)
  1. ISOTRETINOIN [Suspect]
     Active Substance: ISOTRETINOIN
     Dosage: 40 MG, 2X/DAY
     Dates: start: 20220804, end: 20221123
  2. DEPO-PROVERA [Concomitant]
     Active Substance: MEDROXYPROGESTERONE ACETATE
  3. ALLEGRA [Concomitant]
     Active Substance: FEXOFENADINE HYDROCHLORIDE
     Dosage: UNK
     Dates: start: 20221017, end: 20221223
  4. IBUPROFEN [Concomitant]
     Active Substance: IBUPROFEN
     Dosage: UNK
     Dates: start: 20221017, end: 20221223
  5. EQUATE COUGH DM [Concomitant]
     Active Substance: DEXTROMETHORPHAN HYDROBROMIDE
     Dosage: UNK
     Dates: start: 20221017, end: 20221223
  6. VICKS NYQUIL COLD AND FLU [Concomitant]
     Active Substance: ACETAMINOPHEN\DEXTROMETHORPHAN HYDROBROMIDE\DOXYLAMINE SUCCINATE
     Dosage: UNK
     Dates: start: 20221017, end: 20221223
  7. VICKS DAYQUIL COLD + FLU RELIEF [Concomitant]
     Dosage: UNK
     Dates: start: 20221017, end: 20221223
  8. FIBER ADVANCE GUMMIES [Concomitant]
     Dosage: UNK
     Dates: start: 20221017, end: 20221223
  9. VITAFUSION PRENATAL [Concomitant]
     Dosage: UNK
     Dates: start: 20221223
  10. LEVOTHYROXINE [Concomitant]
     Active Substance: LEVOTHYROXINE
     Dosage: UNK
     Dates: start: 20221227
  11. CANNABIS SATIVA SUBSP. INDICA TOP [Concomitant]
     Active Substance: CANNABIS SATIVA SUBSP. INDICA TOP
     Dosage: UNK
     Dates: start: 20221017, end: 20221220
  12. MIDOMAFETAMINE [Concomitant]
     Active Substance: MIDOMAFETAMINE
     Dosage: UNK
     Dates: start: 20221029, end: 20221104
  13. UNSPECIFIED EMERGENCY BIRTH CONTROL [Concomitant]
     Dosage: USED ONCE

REACTIONS (10)
  - Exposure during pregnancy [Recovered/Resolved]
  - Caesarean section [Recovered/Resolved]
  - Amniotic cavity infection [Recovered/Resolved]
  - Nausea [Recovered/Resolved]
  - Malaise [Unknown]
  - Normocytic anaemia [Not Recovered/Not Resolved]
  - Illness [Unknown]
  - Hypothyroidism [Not Recovered/Not Resolved]
  - Headache [Recovered/Resolved]
  - Vomiting [Recovered/Resolved]

NARRATIVE: CASE EVENT DATE: 20220101
